FAERS Safety Report 7442924-7 (Version None)
Quarter: 2011Q2

REPORT INFORMATION
  Report Type: 
  Country: None (occurrence: None)
  Receive Date: 20110425
  Receipt Date: 20110425
  Transmission Date: 20111010
  Serious: Yes (Death)
  Sender: FDA-Public Use
  Company Number: None

PATIENT
  Age: 77 Year
  Sex: Male

DRUGS (5)
  1. MORPHINE [Concomitant]
  2. BISACODYL [Concomitant]
  3. REVLIMID [Suspect]
     Indication: MULTIPLE MYELOMA
     Dosage: REVLIMID 10 MG DAILY ORALLY
     Route: 048
     Dates: start: 20100201, end: 20100701
  4. LORAZEPAM [Concomitant]
  5. ONDANSETRON [Concomitant]

REACTIONS (5)
  - PANCYTOPENIA [None]
  - RENAL FAILURE CHRONIC [None]
  - HAEMODIALYSIS [None]
  - CONFUSIONAL STATE [None]
  - UNRESPONSIVE TO STIMULI [None]
